FAERS Safety Report 6123783-1 (Version None)
Quarter: 2009Q1

REPORT INFORMATION
  Report Type: 
  Country: None (occurrence: None)
  Receive Date: 20090318
  Receipt Date: 20090318
  Transmission Date: 20090719
  Serious: Yes (Hospitalization)
  Sender: FDA-Public Use
  Company Number: None

PATIENT
  Sex: Male
  Weight: 81.6475 kg

DRUGS (1)
  1. LITHIUM CARBONATE [Suspect]
     Indication: BIPOLAR I DISORDER
     Dosage: 1500MG/DAY BID PO
     Route: 048
     Dates: start: 20010101

REACTIONS (10)
  - ABNORMAL BEHAVIOUR [None]
  - DIARRHOEA [None]
  - GASTROINTESTINAL DISORDER [None]
  - MANIA [None]
  - MUSCLE SPASMS [None]
  - NAUSEA [None]
  - PAIN [None]
  - PHYSICAL ASSAULT [None]
  - PRODUCT QUALITY ISSUE [None]
  - VOMITING [None]
